FAERS Safety Report 7624206-3 (Version None)
Quarter: 2011Q3

REPORT INFORMATION
  Report Type: 
  Country: None (occurrence: None)
  Receive Date: 20110720
  Receipt Date: 20110720
  Transmission Date: 20111222
  Serious: Yes (Death, Life-Threatening, Hospitalization)
  Sender: FDA-Public Use
  Company Number: None

PATIENT
  Age: 60 Year
  Sex: Male
  Weight: 70.76 kg

DRUGS (1)
  1. INVEGA SUSTENNA [Suspect]
     Indication: CRANIOCEREBRAL INJURY
     Dosage: 3MG
     Route: 048
     Dates: start: 20110307, end: 20110420

REACTIONS (11)
  - ASPIRATION [None]
  - EAR INFECTION [None]
  - DYSPHAGIA [None]
  - ANURIA [None]
  - INCONTINENCE [None]
  - GAIT DISTURBANCE [None]
  - EYE INFECTION [None]
  - DISTURBANCE IN ATTENTION [None]
  - FATIGUE [None]
  - URINARY TRACT INFECTION [None]
  - INFECTION [None]
